FAERS Safety Report 4983744-2 (Version None)
Quarter: 2006Q1

REPORT INFORMATION
  Report Type: 
  Country: None (occurrence: None)
  Receive Date: 20060301
  Receipt Date: 20060123
  Transmission Date: 20060701
  Serious: Yes (Other)
  Sender: FDA-Public Use
  Company Number: 143777USA

PATIENT
  Age: 76 Year
  Sex: Male
  Weight: 83.9154 kg

DRUGS (2)
  1. TRAZODONE HCL [Suspect]
     Indication: SLEEP DISORDER
     Dosage: 100 MILLIGRAM QD ORAL
     Route: 048
     Dates: start: 20050906, end: 20050919
  2. ZESTRIL [Concomitant]

REACTIONS (1)
  - GRAND MAL CONVULSION [None]
